FAERS Safety Report 4918762-3 (Version None)
Quarter: 2006Q1

REPORT INFORMATION
  Report Type: 
  Country: None (occurrence: None)
  Receive Date: 20060222
  Receipt Date: 20051128
  Transmission Date: 20060701
  Serious: Yes (Death, Life-Threatening, Hospitalization)
  Sender: FDA-Public Use
  Company Number: GBWYE182028NOV05

PATIENT
  Sex: Male
  Weight: 55 kg

DRUGS (14)
  1. ENBREL [Suspect]
     Indication: RHEUMATOID ARTHRITIS
     Route: 058
     Dates: start: 20050926, end: 20051109
  2. LANSOPRAZOLE [Concomitant]
     Indication: PROPHYLAXIS
     Route: 048
  3. PERINDOPRIL [Concomitant]
     Indication: HYPERTENSION
     Route: 048
  4. BENDROFLUMETHIAZIDE [Concomitant]
     Indication: HYPERTENSION
     Route: 048
  5. FLUOXETINE HCL [Concomitant]
     Indication: DEPRESSION
     Route: 048
  6. PROCHLORPERAZINE [Concomitant]
     Indication: NAUSEA
     Route: 048
  7. TEMAZEPAM [Concomitant]
     Indication: INSOMNIA
     Route: 048
  8. CO-PROXAMOL [Concomitant]
     Indication: ANALGESIC EFFECT
     Dosage: 2 TABLET EVERY 1 PRN
     Route: 048
  9. NAPROXEN [Concomitant]
     Indication: RHEUMATOID ARTHRITIS
     Route: 048
  10. ISONIAZID [Concomitant]
     Indication: PROPHYLAXIS
     Route: 048
  11. ADCAL D3 [Concomitant]
     Indication: OSTEOPOROSIS
     Dosage: 1 TBSP EVERY 1 DAY
     Route: 048
  12. CIPROXIN [Concomitant]
     Indication: INFECTION
     Route: 048
  13. ACETYLSALICYLIC ACID SRT [Concomitant]
     Indication: CARDIOVASCULAR EVENT PROPHYLAXIS
     Route: 048
  14. ALENDRONATE SODIUM [Concomitant]
     Indication: OSTEOPOROSIS
     Route: 048

REACTIONS (6)
  - ACID FAST BACILLI INFECTION [None]
  - BRONCHIECTASIS [None]
  - DEATH [None]
  - INTERSTITIAL LUNG DISEASE [None]
  - PNEUMONITIS [None]
  - RESPIRATORY FAILURE [None]
